FAERS Safety Report 5481114-4 (Version None)
Quarter: 2007Q4

REPORT INFORMATION
  Report Type: 
  Country: None (occurrence: None)
  Receive Date: 20071003
  Receipt Date: 20070927
  Transmission Date: 20080405
  Serious: Yes (Hospitalization)
  Sender: FDA-Public Use
  Company Number: 008-C5013-07091457

PATIENT
  Age: 68 Year
  Sex: Male
  Weight: 94 kg

DRUGS (2)
  1. CC-5013 (LENALIDOMIDE) (CAPSULES) [Suspect]
     Indication: MULTIPLE MYELOMA
     Dosage: 25 MG, FOR 21 DAYS, ORAL
     Route: 048
     Dates: start: 20070425, end: 20070927
  2. DEXAMETHASONE [Suspect]
     Indication: MULTIPLE MYELOMA
     Dosage: 40 MG, DAY 1-4, ORAL
     Route: 048
     Dates: start: 20070425

REACTIONS (1)
  - PLEURITIC PAIN [None]
